FAERS Safety Report 15537155 (Version 1)
Quarter: 2018Q4

REPORT INFORMATION
  Report Type: Spontaneous
  Country: US (occurrence: US)
  Receive Date: 20181016
  Receipt Date: 20181016
  Transmission Date: 20190205
  Serious: No
  Sender: FDA-Public Use
  Company Number: None

PATIENT
  Age: 86 Year
  Sex: Female
  Weight: 43.09 kg

DRUGS (6)
  1. DIPHENHYDRAMINE. [Concomitant]
     Active Substance: DIPHENHYDRAMINE
  2. ACYCLOVIR. [Concomitant]
     Active Substance: ACYCLOVIR
  3. METOPROLOL. [Concomitant]
     Active Substance: METOPROLOL
  4. CAPECITABINE 500 MG [Suspect]
     Active Substance: CAPECITABINE
     Route: 048
     Dates: start: 20180928
  5. PREDNISONE. [Concomitant]
     Active Substance: PREDNISONE
  6. RANITIDINE. [Concomitant]
     Active Substance: RANITIDINE

REACTIONS (1)
  - Hospitalisation [None]

NARRATIVE: CASE EVENT DATE: 20181001
